FAERS Safety Report 7481769-9 (Version None)
Quarter: 2011Q2

REPORT INFORMATION
  Report Type: 
  Country: None (occurrence: None)
  Receive Date: 20110516
  Receipt Date: 20110509
  Transmission Date: 20111010
  Serious: Yes (Other)
  Sender: FDA-Public Use
  Company Number: D0071311A

PATIENT
  Sex: Male
  Weight: 87.6 kg

DRUGS (9)
  1. RAMIPRIL [Concomitant]
     Dosage: 2.5MG PER DAY
     Route: 065
     Dates: start: 20110407, end: 20110427
  2. VALORON [Concomitant]
     Route: 048
  3. ZOLPIDEM [Concomitant]
     Dosage: 10MG PER DAY
     Route: 048
     Dates: start: 20110426
  4. ARIXTRA [Suspect]
     Route: 058
     Dates: start: 20110331, end: 20110428
  5. VASOMOTAL [Concomitant]
     Dosage: 16MG TWICE PER DAY
     Route: 048
     Dates: start: 20110419, end: 20110427
  6. METFORMIN HCL [Concomitant]
     Dosage: 850MG PER DAY
     Route: 048
     Dates: start: 20110331
  7. SIMVASTATIN [Concomitant]
     Dosage: 80MG PER DAY
     Route: 048
     Dates: start: 20110331
  8. MACROGOL [Concomitant]
     Route: 065
     Dates: start: 20110423, end: 20110428
  9. AGGRENOX [Concomitant]
     Route: 048
     Dates: start: 20110331

REACTIONS (7)
  - BRONCHOSPASM [None]
  - DYSPNOEA [None]
  - APHASIA [None]
  - LIP SWELLING [None]
  - OEDEMA MOUTH [None]
  - DERMATITIS ALLERGIC [None]
  - PRURITUS [None]
